FAERS Safety Report 7476551-2 (Version None)
Quarter: 2011Q2

REPORT INFORMATION
  Report Type: 
  Country: None (occurrence: None)
  Receive Date: 20110512
  Receipt Date: 20110502
  Transmission Date: 20111010
  Serious: Yes (Other)
  Sender: FDA-Public Use
  Company Number: PHHY2011US36840

PATIENT
  Sex: Female
  Weight: 81 kg

DRUGS (1)
  1. RECLAST [Suspect]
     Dosage: 5 MG, UNK
     Route: 042

REACTIONS (8)
  - INFLUENZA LIKE ILLNESS [None]
  - VOMITING [None]
  - PYREXIA [None]
  - NECK PAIN [None]
  - TRISMUS [None]
  - APHAGIA [None]
  - NAUSEA [None]
  - TREMOR [None]
